FAERS Safety Report 20383402 (Version 2)
Quarter: 2022Q1

REPORT INFORMATION
  Report Type: Spontaneous
  Country: US (occurrence: US)
  Receive Date: 20220127
  Receipt Date: 20220211
  Transmission Date: 20220423
  Serious: No
  Sender: FDA-Public Use
  Company Number: US-PFIZER INC-202200127203

PATIENT
  Age: 67 Year
  Sex: Female
  Weight: 65.77 kg

DRUGS (5)
  1. PAXLOVID [Suspect]
     Active Substance: NIRMATRELVIR\RITONAVIR
     Indication: COVID-19
     Dosage: 2X/DAY (5 BUBBLE PACKS AND EACH DAY BUBBLE PACK IS MARKED 3 FOR EVENING AND 3 FOR THE DAY)
     Dates: start: 20220117
  2. ACYCLOVIR [Concomitant]
     Active Substance: ACYCLOVIR
     Indication: Neoplasm malignant
     Dosage: 400 MG, 2X/DAY (200MG TWO TABLETS IN THE MORNING AND TWO AT NIGHT)
     Dates: start: 202109
  3. POSACONAZOLE [Concomitant]
     Active Substance: POSACONAZOLE
     Indication: Fungal infection
     Dosage: 300 MG, 1X/DAY (100MG THREE TABLETS AT NOON DAILY)
     Dates: start: 202109
  4. PREVYMIS [Concomitant]
     Active Substance: LETERMOVIR
     Indication: Transplant rejection
     Dosage: 400 MG, 1X/DAY (400MG ONCE DAILY)
     Dates: start: 2021
  5. DAPSONE [Concomitant]
     Active Substance: DAPSONE
     Indication: Prophylaxis
     Dosage: 100 MG, 1X/DAY (100MG ONE TABLET DAILY)
     Dates: start: 202112

REACTIONS (5)
  - Decreased appetite [Not Recovered/Not Resolved]
  - Dysgeusia [Not Recovered/Not Resolved]
  - Condition aggravated [Not Recovered/Not Resolved]
  - Diarrhoea [Not Recovered/Not Resolved]
  - Feeling abnormal [Unknown]

NARRATIVE: CASE EVENT DATE: 20220117
